FAERS Safety Report 9839869 (Version 1)
Quarter: 2014Q1

REPORT INFORMATION
  Report Type: Spontaneous
  Country: US (occurrence: US)
  Receive Date: 20140124
  Receipt Date: 20140124
  Transmission Date: 20141002
  Serious: Yes (Hospitalization)
  Sender: FDA-Public Use
  Company Number: PHEH2014US001436

PATIENT
  Sex: Female

DRUGS (8)
  1. DIOVAN [Suspect]
     Indication: HYPERTENSION
     Dosage: 320 MG, UNK
  2. HUMALOG [Concomitant]
     Indication: DIABETES MELLITUS
     Dosage: UNK UKN, UNK
  3. LYRICA [Concomitant]
     Dosage: UNK UKN, UNK
  4. BUPROPION HCL ER [Concomitant]
     Dosage: 150 MG, UNK
  5. SIMVASTATIN [Concomitant]
     Dosage: 2 DF, (20 MG) DAILY
  6. NEPHROVITE [Concomitant]
     Dosage: UNK UKN, UNK
  7. VITAMIN D [Concomitant]
     Dosage: UNK UKN, UNK
  8. ASPIRIN [Concomitant]
     Dosage: 325 MG, UNK

REACTIONS (1)
  - Quadriplegia [Unknown]
